FAERS Safety Report 24967593 (Version 14)
Quarter: 2025Q2

REPORT INFORMATION
  Report Type: Report from Study
  Country: DE (occurrence: DE)
  Receive Date: 20250214
  Receipt Date: 20250417
  Transmission Date: 20250716
  Serious: Yes (Death, Hospitalization)
  Sender: NOVARTIS
  Company Number: DE-002147023-NVSC2025DE024731

PATIENT
  Sex: Female
  Weight: 86 kg

DRUGS (36)
  1. KISQALI [Suspect]
     Active Substance: RIBOCICLIB SUCCINATE
     Indication: Hormone receptor positive HER2 negative breast cancer
     Dosage: 600 MG, QD (SCHEMA 21 DAYS INTAKE, 7 DAYS PAUSE)
     Route: 048
     Dates: start: 20190823, end: 20191127
  2. KISQALI [Suspect]
     Active Substance: RIBOCICLIB SUCCINATE
     Dosage: 400 MG, QD (SCHEMA 21 DAYS INTAKE, 7 DAYS PAUSE)
     Route: 048
     Dates: start: 20191206, end: 20221025
  3. KISQALI [Suspect]
     Active Substance: RIBOCICLIB SUCCINATE
     Route: 065
     Dates: start: 2020, end: 202301
  4. KISQALI [Suspect]
     Active Substance: RIBOCICLIB SUCCINATE
     Route: 065
     Dates: start: 202408
  5. KISQALI [Suspect]
     Active Substance: RIBOCICLIB SUCCINATE
     Dosage: 400 MG, QD (SCHEMA 21 DAYS INTAKE, 7 DAYS PAUSE)
     Route: 048
     Dates: start: 20240821, end: 20250123
  6. LETROZOLE [Suspect]
     Active Substance: LETROZOLE
     Indication: Hormone receptor positive HER2 negative breast cancer
     Dosage: 2.5 MG, QD
     Route: 048
     Dates: start: 20190821, end: 20220915
  7. FULVESTRANT [Suspect]
     Active Substance: FULVESTRANT
     Indication: Hormone receptor positive HER2 negative breast cancer
     Dosage: 250 MG, QD (EVERY 2 WEEKS)
     Route: 058
     Dates: start: 20220916, end: 20221025
  8. FULVESTRANT [Suspect]
     Active Substance: FULVESTRANT
     Dosage: 250 MG, QD (EVERY 2 WEEKS) (SUBDERMAL)
     Route: 058
     Dates: start: 20220916, end: 20221025
  9. FASLODEX [Concomitant]
     Active Substance: FULVESTRANT
     Indication: Product used for unknown indication
     Route: 065
  10. FASLODEX [Concomitant]
     Active Substance: FULVESTRANT
     Route: 065
  11. FASLODEX [Concomitant]
     Active Substance: FULVESTRANT
     Route: 065
  12. FASLODEX [Concomitant]
     Active Substance: FULVESTRANT
     Route: 058
     Dates: start: 202209, end: 20221025
  13. FASLODEX [Concomitant]
     Active Substance: FULVESTRANT
     Dosage: 500 MG Q4W (SUBCUTANEOUS / INTRAMUSCULAR)
     Route: 065
     Dates: start: 20221026, end: 20250113
  14. FASLODEX [Concomitant]
     Active Substance: FULVESTRANT
     Route: 065
  15. FASLODEX [Concomitant]
     Active Substance: FULVESTRANT
     Route: 065
  16. FASLODEX [Concomitant]
     Active Substance: FULVESTRANT
     Route: 065
  17. FASLODEX [Concomitant]
     Active Substance: FULVESTRANT
     Route: 065
  18. FASLODEX [Concomitant]
     Active Substance: FULVESTRANT
     Route: 065
  19. FASLODEX [Concomitant]
     Active Substance: FULVESTRANT
     Route: 065
  20. FASLODEX [Concomitant]
     Active Substance: FULVESTRANT
     Route: 065
  21. FASLODEX [Concomitant]
     Active Substance: FULVESTRANT
     Route: 065
  22. XGEVA [Concomitant]
     Active Substance: DENOSUMAB
     Indication: Product used for unknown indication
     Route: 065
  23. XGEVA [Concomitant]
     Active Substance: DENOSUMAB
     Route: 065
  24. XGEVA [Concomitant]
     Active Substance: DENOSUMAB
     Route: 065
  25. XGEVA [Concomitant]
     Active Substance: DENOSUMAB
     Dosage: 120 MG, Q4W
     Route: 058
     Dates: start: 20201006, end: 202501
  26. LEVOTHYROXINE [Concomitant]
     Active Substance: LEVOTHYROXINE
     Indication: Product used for unknown indication
     Route: 065
  27. LEVOTHYROXINE [Concomitant]
     Active Substance: LEVOTHYROXINE
     Route: 065
  28. LEVOTHYROXINE [Concomitant]
     Active Substance: LEVOTHYROXINE
     Dosage: 75 UG, QD
     Route: 048
     Dates: start: 2000, end: 2005
  29. RAMIPRIL [Concomitant]
     Active Substance: RAMIPRIL
     Indication: Product used for unknown indication
     Route: 065
  30. RAMIPRIL [Concomitant]
     Active Substance: RAMIPRIL
     Route: 065
  31. RAMIPRIL [Concomitant]
     Active Substance: RAMIPRIL
     Route: 065
  32. RAMIPRIL [Concomitant]
     Active Substance: RAMIPRIL
     Route: 065
  33. RAMIPRIL [Concomitant]
     Active Substance: RAMIPRIL
     Route: 065
  34. RAMIPRIL [Concomitant]
     Active Substance: RAMIPRIL
     Dosage: UNK MG, QD
     Route: 065
     Dates: start: 2004
  35. RAMIPRIL [Concomitant]
     Active Substance: RAMIPRIL
     Route: 065
  36. RAMIPRIL [Concomitant]
     Active Substance: RAMIPRIL
     Dosage: UNK MG, QD
     Route: 048
     Dates: end: 2024

REACTIONS (12)
  - Hepatic failure [Fatal]
  - Tumour invasion [Fatal]
  - Hepatic cirrhosis [Fatal]
  - Hyperbilirubinaemia [Fatal]
  - Jaundice [Fatal]
  - Chromaturia [Fatal]
  - Faeces discoloured [Fatal]
  - Nausea [Fatal]
  - Ascites [Fatal]
  - Fatigue [Fatal]
  - Muscle atrophy [Fatal]
  - Decreased appetite [Fatal]

NARRATIVE: CASE EVENT DATE: 20250107
